FAERS Safety Report 22614737 (Version 1)
Quarter: 2023Q2

REPORT INFORMATION
  Report Type: Report from Study
  Country: PA (occurrence: PA)
  Receive Date: 20230619
  Receipt Date: 20230619
  Transmission Date: 20230721
  Serious: Yes (Death, Other)
  Sender: FDA-Public Use
  Company Number: PA-002147023-NVSC2022PA177376

PATIENT
  Sex: Female

DRUGS (2)
  1. KISQALI [Suspect]
     Active Substance: RIBOCICLIB
     Indication: Breast cancer
     Dosage: 3 (600 MG), QD
     Route: 048
     Dates: start: 202206
  2. KISQALI [Suspect]
     Active Substance: RIBOCICLIB
     Dosage: 600 MG, BID (HALF AN HOUR AFTER BREAKFAST AND HALF AN HOUR AFTER EATING)
     Route: 048
     Dates: start: 20220729

REACTIONS (4)
  - Malaise [Fatal]
  - Metastases to liver [Unknown]
  - Incorrect dose administered [Unknown]
  - Product use issue [Unknown]
